FAERS Safety Report 4537037-8 (Version None)
Quarter: 2004Q4

REPORT INFORMATION
  Report Type: 
  Country: None (occurrence: None)
  Receive Date: 20041220
  Receipt Date: 20041116
  Transmission Date: 20050328
  Serious: Yes (Other)
  Sender: FDA-Public Use
  Company Number: GBWYE219822NOV04

PATIENT

DRUGS (4)
  1. GEMTUZUMAB OZOGAMICIN        (GEMTUZUMABH OZOGAMICIN) [Suspect]
     Indication: ACUTE MYELOID LEUKAEMIA
  2. AMSACRINE (AMSACRINE) [Suspect]
     Indication: ACUTE MYELOID LEUKAEMIA
     Dosage: 100 MG/M2 DAILY BY 1 HOUR INFUSION INFUSION
     Route: 042
  3. CYTARABINE [Suspect]
     Indication: ACUTE MYELOID LEUKAEMIA
     Dosage: 200 MG/M2 DAILY BY CONTINUOUS INFUSION, DAYS 1-5
     Route: 042
  4. ETOPOSIDE [Suspect]
     Indication: ACUTE MYELOID LEUKAEMIA
     Dosage: 100 MG/M2 DAILY BY 1 HOUR INFUSION, DAYS 1-5 INFUSION
     Route: 042

REACTIONS (2)
  - RENAL FAILURE [None]
  - SEPSIS [None]
